FAERS Safety Report 23585936 (Version 1)
Quarter: 2024Q1

REPORT INFORMATION
  Report Type: Spontaneous
  Country: US (occurrence: US)
  Receive Date: 20240301
  Receipt Date: 20240301
  Transmission Date: 20240410
  Serious: Yes (Death)
  Sender: FDA-Public Use
  Company Number: US-Eisai-EC-2024-160630

PATIENT
  Age: 48 Year
  Sex: Female

DRUGS (2)
  1. LENVIMA [Suspect]
     Active Substance: LENVATINIB
     Indication: Renal cancer
     Route: 048
     Dates: end: 20240219
  2. LENVIMA [Suspect]
     Active Substance: LENVATINIB
     Dosage: 14 MG/18 MG ALTERNATING DAYS
     Route: 048
     Dates: start: 20240220

REACTIONS (1)
  - Malignant neoplasm progression [Fatal]

NARRATIVE: CASE EVENT DATE: 20240223
